FAERS Safety Report 4752642-1 (Version None)
Quarter: 2005Q3

REPORT INFORMATION
  Report Type: 
  Country: None (occurrence: None)
  Receive Date: 20050825
  Receipt Date: 20050718
  Transmission Date: 20060218
  Serious: Yes (Hospitalization)
  Sender: FDA-Public Use
  Company Number: 200512385FR

PATIENT
  Age: 80 Year
  Sex: Male

DRUGS (3)
  1. AMAREL [Suspect]
     Indication: DIABETES MELLITUS NON-INSULIN-DEPENDENT
     Route: 048
     Dates: end: 20050621
  2. NISIS [Suspect]
     Indication: ESSENTIAL HYPERTENSION
     Route: 048
  3. TENORMIN [Concomitant]
     Route: 048

REACTIONS (2)
  - PANCREATITIS ACUTE [None]
  - RENAL FAILURE [None]
